FAERS Safety Report 10312052 (Version 1)
Quarter: 2014Q3

REPORT INFORMATION
  Report Type: Spontaneous
  Country: US (occurrence: US)
  Receive Date: 20140717
  Receipt Date: 20140717
  Transmission Date: 20150326
  Serious: Yes (Hospitalization, Other)
  Sender: FDA-Public Use
  Company Number: PHEH2014US014102

PATIENT

DRUGS (2)
  1. TRILEPTAL [Suspect]
     Active Substance: OXCARBAZEPINE
     Indication: BIPOLAR DISORDER
     Dosage: UNK UKN, UNK
  2. SEROQUEL [Suspect]
     Active Substance: QUETIAPINE FUMARATE
     Indication: BIPOLAR DISORDER
     Dosage: UNK UKN, UNK

REACTIONS (6)
  - Renal disorder [Unknown]
  - Fall [Unknown]
  - Orthostatic hypotension [Unknown]
  - Hypokalaemia [Unknown]
  - Hyponatraemia [Unknown]
  - Wrist fracture [Unknown]

NARRATIVE: CASE EVENT DATE: 20140704
